FAERS Safety Report 18309430 (Version 1)
Quarter: 2020Q3

REPORT INFORMATION
  Report Type: Report from Study
  Country: US (occurrence: US)
  Receive Date: 20200924
  Receipt Date: 20200924
  Transmission Date: 20201103
  Serious: Yes (Hospitalization)
  Sender: FDA-Public Use
  Company Number: US-KARYOPHARM-2020KPT001114

PATIENT
  Age: 80 Year
  Sex: Male
  Weight: 43 kg

DRUGS (17)
  1. BLINDED SELINEXOR [Suspect]
     Active Substance: SELINEXOR
     Indication: DEDIFFERENTIATED LIPOSARCOMA
     Dates: start: 20200701, end: 20200821
  2. BLINDED SELINEXOR [Suspect]
     Active Substance: SELINEXOR
     Dates: start: 20200824, end: 20200914
  3. MAGNESIUM CHLORIDE. [Concomitant]
     Active Substance: MAGNESIUM CHLORIDE
     Indication: PROPHYLAXIS
     Dosage: 64 MG, QD
     Route: 048
     Dates: start: 202001
  4. ASCORBIC ACID. [Concomitant]
     Active Substance: ASCORBIC ACID
     Indication: PROPHYLAXIS
     Dosage: 500 MG, QD
     Route: 048
     Dates: start: 202001
  5. IODINE. [Concomitant]
     Active Substance: IODINE
     Indication: IODINE DEFICIENCY
     Dosage: 1 DF, PRN
     Route: 048
     Dates: start: 202001
  6. VITAMIN E [Concomitant]
     Active Substance: .ALPHA.-TOCOPHEROL
     Indication: PROPHYLAXIS
     Dosage: 400 IU, QD
     Route: 048
     Dates: start: 202001
  7. APIXABAN [Concomitant]
     Active Substance: APIXABAN
     Indication: DEEP VEIN THROMBOSIS
     Dosage: 5 MG, BID
     Route: 048
     Dates: start: 20200423
  8. CHOLECALCIFEROL [Concomitant]
     Active Substance: CHOLECALCIFEROL
     Indication: PROPHYLAXIS
     Dosage: 1000 IU, QD
     Route: 048
     Dates: start: 202001
  9. ONDANSETRON [Concomitant]
     Active Substance: ONDANSETRON
     Indication: NAUSEA
     Dosage: 8 MG, PRN
     Route: 048
     Dates: start: 20200701
  10. PLACEBO [Suspect]
     Active Substance: UNSPECIFIED INGREDIENT
     Dates: start: 20200824, end: 20200914
  11. LEVOTHYROXINE. [Concomitant]
     Active Substance: LEVOTHYROXINE
     Indication: HYPOTHYROIDISM
     Dosage: 50 UG, QD
     Route: 048
     Dates: start: 20180828
  12. SODIUM CHLORIDE. [Concomitant]
     Active Substance: SODIUM CHLORIDE
     Indication: DECREASED APPETITE
  13. OLANZAPINE. [Concomitant]
     Active Substance: OLANZAPINE
     Indication: NAUSEA
     Dosage: 2.5 MG, PRN
     Route: 048
     Dates: start: 20200701
  14. SODIUM CHLORIDE. [Concomitant]
     Active Substance: SODIUM CHLORIDE
     Indication: FATIGUE
     Dosage: 1000 ML
     Route: 042
     Dates: start: 20200831, end: 20200831
  15. METHYLPHENIDATE. [Concomitant]
     Active Substance: METHYLPHENIDATE
     Indication: FATIGUE
     Dosage: 5 MG, QD
     Route: 048
     Dates: start: 20200904
  16. PLACEBO [Suspect]
     Active Substance: UNSPECIFIED INGREDIENT
     Indication: DEDIFFERENTIATED LIPOSARCOMA
     Dates: start: 20200701, end: 20200821
  17. FERROUS SULFATE. [Concomitant]
     Active Substance: FERROUS SULFATE
     Indication: ANAEMIA
     Dosage: 325 MG, PRN
     Route: 048
     Dates: start: 202001, end: 20200916

REACTIONS (1)
  - Decreased appetite [Not Recovered/Not Resolved]

NARRATIVE: CASE EVENT DATE: 20200910
